FAERS Safety Report 11307996 (Version 1)
Quarter: 2015Q3

REPORT INFORMATION
  Report Type: Spontaneous
  Country: CO (occurrence: CO)
  Receive Date: 20150724
  Receipt Date: 20150724
  Transmission Date: 20151125
  Serious: Yes (Other)
  Sender: FDA-Public Use
  Company Number: CO-AMGEN-COLSP2015074276

PATIENT
  Age: 18 Year
  Sex: Female

DRUGS (5)
  1. ENBREL [Suspect]
     Active Substance: ETANERCEPT
     Indication: JUVENILE IDIOPATHIC ARTHRITIS
     Dosage: 50 MG, WEEKLY
     Route: 058
     Dates: start: 201402
  2. METHOTREXATE [Concomitant]
     Active Substance: METHOTREXATE
     Dosage: UNK
  3. CALCIUM [Concomitant]
     Active Substance: CALCIUM
     Dosage: UNK
  4. ALPHA-TOCOPHEROL, D- [Concomitant]
     Dosage: UNK
  5. PREDNISOLONE. [Concomitant]
     Active Substance: PREDNISOLONE
     Dosage: UNK

REACTIONS (2)
  - Juvenile idiopathic arthritis [Recovering/Resolving]
  - Disease progression [Recovering/Resolving]

NARRATIVE: CASE EVENT DATE: 201504
